FAERS Safety Report 9417782 (Version 3)
Quarter: 2013Q3

REPORT INFORMATION
  Report Type: Spontaneous
  Country: JP (occurrence: JP)
  Receive Date: 20130724
  Receipt Date: 20130927
  Transmission Date: 20140515
  Serious: Yes (Hospitalization)
  Sender: FDA-Public Use
  Company Number: JP-GLAXOSMITHKLINE-B0909337A

PATIENT
  Age: 50 Year
  Sex: Male

DRUGS (3)
  1. LAMICTAL [Suspect]
     Indication: BIPOLAR DISORDER
     Dosage: 25MG TWICE PER DAY
     Route: 048
     Dates: start: 20120628, end: 20120713
  2. LAMICTAL [Suspect]
     Indication: BIPOLAR DISORDER
     Dosage: 50MG TWICE PER DAY
     Route: 048
     Dates: start: 20120713, end: 20120727
  3. PAXIL [Concomitant]
     Indication: DEPRESSION
     Route: 048

REACTIONS (7)
  - Drug-induced liver injury [Recovered/Resolved]
  - Toxic skin eruption [Recovered/Resolved]
  - Erythema [Unknown]
  - Eczema [Unknown]
  - Rash papular [Unknown]
  - Pyrexia [Unknown]
  - Hepatic function abnormal [Recovered/Resolved]
